FAERS Safety Report 6753104-2 (Version None)
Quarter: 2010Q2

REPORT INFORMATION
  Report Type: 
  Country: None (occurrence: None)
  Receive Date: 20100603
  Receipt Date: 20100525
  Transmission Date: 20101027
  Serious: Yes (Hospitalization, Other)
  Sender: FDA-Public Use
  Company Number: PHHY2010CA34836

PATIENT
  Sex: Female

DRUGS (2)
  1. CLOZARIL [Suspect]
     Indication: SCHIZOPHRENIA
     Dosage: UNK,UNK
     Dates: start: 20100429, end: 20100527
  2. CLOZARIL [Suspect]
     Dosage: 350 / DAY
     Dates: start: 20100506, end: 20100525

REACTIONS (4)
  - INFLUENZA [None]
  - LEUKOCYTOSIS [None]
  - MYOCARDITIS [None]
  - PERICARDITIS [None]
